FAERS Safety Report 25218834 (Version 5)
Quarter: 2025Q3

REPORT INFORMATION
  Report Type: Spontaneous
  Country: AU (occurrence: AU)
  Receive Date: 20250421
  Receipt Date: 20250805
  Transmission Date: 20251020
  Serious: Yes (Hospitalization, Other)
  Sender: CSL BEHRING
  Company Number: AU-BEH-2025201957

PATIENT
  Age: 71 Year
  Sex: Male

DRUGS (6)
  1. PRIVIGEN [Suspect]
     Active Substance: HUMAN IMMUNOGLOBULIN G
     Indication: Multifocal motor neuropathy
     Dosage: 55 G EVERY 2 WEEKS
     Route: 065
  2. PRIVIGEN [Suspect]
     Active Substance: HUMAN IMMUNOGLOBULIN G
     Dosage: 110 G, QW
     Route: 065
  3. ANAGRELIDE [Concomitant]
     Active Substance: ANAGRELIDE
     Dosage: 0.5 MG, BID
  4. ASPIRIN [Concomitant]
     Active Substance: ASPIRIN
  5. RIVAROXABAN [Concomitant]
     Active Substance: RIVAROXABAN
  6. BISOPROLOL [Concomitant]
     Active Substance: BISOPROLOL
     Dosage: 2.5 MG, BID

REACTIONS (3)
  - Aphasia [Recovered/Resolved]
  - Depressed level of consciousness [Recovered/Resolved]
  - Headache [Recovered/Resolved]

NARRATIVE: CASE EVENT DATE: 20250403
